FAERS Safety Report 4549691-5 (Version None)
Quarter: 2005Q1

REPORT INFORMATION
  Report Type: 
  Country: None (occurrence: None)
  Receive Date: 20050107
  Receipt Date: 20050104
  Transmission Date: 20050727
  Serious: Yes (Hospitalization)
  Sender: FDA-Public Use
  Company Number: AZAUS200400113

PATIENT
  Age: 70 Year
  Sex: Male
  Weight: 80.7403 kg

DRUGS (1)
  1. VIDAZA [Suspect]
     Indication: MYELODYSPLASTIC SYNDROME
     Dosage: (ONCE DAILYX5 DAYS), SUBCUTANEOUS
     Route: 058
     Dates: start: 20040809, end: 20040813

REACTIONS (2)
  - HEPATIC FUNCTION ABNORMAL [None]
  - PROTHROMBIN TIME PROLONGED [None]
